FAERS Safety Report 9766448 (Version 2)
Quarter: 2014Q1

REPORT INFORMATION
  Report Type: Spontaneous
  Country: US (occurrence: US)
  Receive Date: 20131217
  Receipt Date: 20140312
  Transmission Date: 20141002
  Serious: No
  Sender: FDA-Public Use
  Company Number: US-BIOGENIDEC-2013BI117646

PATIENT
  Age: 64 Year
  Sex: Female
  Weight: 94 kg

DRUGS (2)
  1. TECFIDERA [Suspect]
     Indication: MULTIPLE SCLEROSIS
     Route: 048
  2. TECFIDERA [Suspect]
     Indication: MULTIPLE SCLEROSIS
     Route: 048
     Dates: start: 20131006

REACTIONS (4)
  - Balance disorder [Unknown]
  - Dry mouth [Not Recovered/Not Resolved]
  - Dry skin [Unknown]
  - Dry eye [Not Recovered/Not Resolved]
